FAERS Safety Report 12412635 (Version 2)
Quarter: 2016Q3

REPORT INFORMATION
  Report Type: Report from Study
  Country: KW (occurrence: KW)
  Receive Date: 20160527
  Receipt Date: 20160714
  Transmission Date: 20161109
  Serious: Yes (Life-Threatening)
  Sender: FDA-Public Use
  Company Number: KW-SYMPLMED PHARMACEUTICALS-2016SYMPLMED000226

PATIENT

DRUGS (1)
  1. COVERSYL [Suspect]
     Active Substance: PERINDOPRIL
     Indication: HYPERTENSION
     Dosage: 10 MG, QD
     Route: 048
     Dates: start: 20160106, end: 20160110

REACTIONS (6)
  - Blood creatinine increased [Unknown]
  - Blood sodium increased [Unknown]
  - Product use issue [Unknown]
  - Flank pain [Unknown]
  - Renal artery stenosis [Unknown]
  - Blood potassium increased [Unknown]

NARRATIVE: CASE EVENT DATE: 20160106
